FAERS Safety Report 18424176 (Version 1)
Quarter: 2020Q4

REPORT INFORMATION
  Report Type: Spontaneous
  Country: BR (occurrence: BR)
  Receive Date: 20201025
  Receipt Date: 20201025
  Transmission Date: 20210114
  Serious: Yes (Hospitalization)
  Sender: FDA-Public Use
  Company Number: BR-CELLTRION INC.-2020BR029416

PATIENT

DRUGS (2)
  1. REMSIMA [Suspect]
     Active Substance: INFLIXIMAB
     Dosage: 100 MG ONCE MONHTLY
     Route: 065
  2. REMSIMA [Suspect]
     Active Substance: INFLIXIMAB
     Indication: PRODUCT USED FOR UNKNOWN INDICATION
     Dosage: UNK
     Route: 065
     Dates: start: 201912

REACTIONS (6)
  - Weight decreased [Unknown]
  - Haematochezia [Unknown]
  - Feeling abnormal [Unknown]
  - Colitis [Unknown]
  - Dysgraphia [Unknown]
  - Inappropriate schedule of product administration [Unknown]
